FAERS Safety Report 4717815-2 (Version None)
Quarter: 2005Q3

REPORT INFORMATION
  Report Type: 
  Country: None (occurrence: None)
  Receive Date: 20050715
  Receipt Date: 20040806
  Transmission Date: 20060218
  Serious: Yes (Other)
  Sender: FDA-Public Use
  Company Number: 2004-00333

PATIENT
  Sex: Male

DRUGS (2)
  1. INTEGRILIN [Suspect]
  2. HEPARIN [Concomitant]

REACTIONS (3)
  - ANAPHYLACTIC REACTION [None]
  - THROMBOCYTOPENIA [None]
  - TREMOR [None]
